FAERS Safety Report 14139973 (Version 7)
Quarter: 2018Q1

REPORT INFORMATION
  Report Type: Spontaneous
  Country: JP (occurrence: JP)
  Receive Date: 20171030
  Receipt Date: 20180117
  Transmission Date: 20180508
  Serious: Yes (Death, Other)
  Sender: FDA-Public Use
  Company Number: JP-TAKEDA-2017TJP021996

PATIENT
  Age: 58 Year
  Sex: Male

DRUGS (20)
  1. NINLARO [Suspect]
     Active Substance: IXAZOMIB CITRATE
     Indication: PLASMA CELL MYELOMA
     Dosage: 4 MG, UNK
     Route: 048
     Dates: start: 20171003
  2. DAIPHEN [Concomitant]
     Active Substance: SULFAMETHOXAZOLE\TRIMETHOPRIM
     Dosage: 1 DF, 2/WEEK
     Route: 048
  3. NINLARO [Suspect]
     Active Substance: IXAZOMIB CITRATE
     Dosage: 3 MG, UNK
     Route: 048
     Dates: start: 20171031, end: 20171115
  4. REVLIMID [Suspect]
     Active Substance: LENALIDOMIDE
     Dosage: 5 MG, QD
     Route: 048
     Dates: start: 20171003
  5. LENADEX [Concomitant]
     Active Substance: DEXAMETHASONE ACETATE
     Dosage: 20 MG, UNK
     Route: 048
     Dates: start: 20171003
  6. TRAMAL [Concomitant]
     Active Substance: TRAMADOL
     Indication: PAIN
     Dosage: 25 MG, QID
     Route: 048
  7. TRAMAL [Concomitant]
     Active Substance: TRAMADOL
     Dosage: 25 MG, UNK
     Route: 048
  8. FLUCONAZOLE. [Concomitant]
     Active Substance: FLUCONAZOLE
     Dosage: 200 MG, QD
     Route: 048
  9. MOHRUS L [Concomitant]
     Active Substance: KETOPROFEN
     Dosage: UNK
     Route: 062
  10. KYTRIL [Concomitant]
     Active Substance: GRANISETRON HYDROCHLORIDE
     Dosage: 1 DF, QD
     Route: 048
  11. LEVOFLOXACIN HEMIHYDRATE [Concomitant]
     Active Substance: LEVOFLOXACIN
     Indication: PROPHYLAXIS
     Dosage: 250 MG, QD
     Route: 048
     Dates: start: 20171107
  12. LOPERAMIDE HYDROCHLORIDE. [Concomitant]
     Active Substance: LOPERAMIDE HYDROCHLORIDE
     Indication: DIARRHOEA
     Dosage: 1 MG, UNK
     Route: 048
  13. REVLIMID [Suspect]
     Active Substance: LENALIDOMIDE
     Indication: PLASMA CELL MYELOMA
     Dosage: 10 MG, UNK
     Route: 048
  14. LENADEX [Concomitant]
     Active Substance: DEXAMETHASONE ACETATE
     Indication: PLASMA CELL MYELOMA
     Dosage: UNK
     Route: 048
  15. RABEPRAZOLE NA [Concomitant]
     Active Substance: RABEPRAZOLE SODIUM
     Dosage: 10 MG, QD
     Route: 048
  16. ACICLOVIR [Concomitant]
     Active Substance: ACYCLOVIR
     Dosage: 200 MG, QD
     Route: 048
  17. SHAKUYAKUKANZOTO [Concomitant]
     Active Substance: HERBALS
     Dosage: 2.5 G, TID
     Route: 048
  18. BAYASPIRIN [Concomitant]
     Active Substance: ASPIRIN
     Dosage: 100 MG, QD
     Route: 048
  19. CALONAL [Concomitant]
     Active Substance: ACETAMINOPHEN
     Dosage: 400 MG, QID
     Route: 048
  20. FUROSEMIDE. [Concomitant]
     Active Substance: FUROSEMIDE
     Dosage: 200 MG, QD
     Route: 048

REACTIONS (7)
  - Bone marrow failure [Recovered/Resolved]
  - Plasma cell myeloma [Unknown]
  - Pneumonia [Unknown]
  - Diarrhoea [Recovered/Resolved]
  - Septic shock [Fatal]
  - Headache [Recovered/Resolved]
  - Road traffic accident [Fatal]

NARRATIVE: CASE EVENT DATE: 201710
